FAERS Safety Report 8470921-1 (Version None)
Quarter: 2012Q2

REPORT INFORMATION
  Report Type: 
  Country: None (occurrence: None)
  Receive Date: 20120627
  Receipt Date: 20120622
  Transmission Date: 20120825
  Serious: Yes (Hospitalization)
  Sender: FDA-Public Use
  Company Number: US-SANOFI-AVENTIS-2012SA044813

PATIENT
  Age: 46 Year
  Sex: Female
  Weight: 76.6 kg

DRUGS (5)
  1. DOCETAXEL [Suspect]
     Indication: BREAST CANCER
     Route: 042
     Dates: start: 20120502
  2. TRASTUZUMAB [Suspect]
     Indication: BREAST CANCER
     Route: 042
     Dates: start: 20120502
  3. EXTRA STRENGTH TYLENOL [Concomitant]
     Indication: PAIN
     Dosage: TYLENOL EXTRA STRENGTH
     Route: 048
  4. DEXAMETHASONE [Concomitant]
     Route: 048
  5. MOTRIN [Concomitant]
     Indication: PAIN

REACTIONS (4)
  - PALPITATIONS [None]
  - BACK PAIN [None]
  - RENAL STONE REMOVAL [None]
  - MYALGIA [None]
